FAERS Safety Report 21791872 (Version 1)
Quarter: 2022Q4

REPORT INFORMATION
  Report Type: Spontaneous
  Country: FR (occurrence: FR)
  Receive Date: 20221229
  Receipt Date: 20221229
  Transmission Date: 20230112
  Serious: Yes (Hospitalization)
  Sender: FDA-Public Use
  Company Number: FR-SUN PHARMACEUTICAL INDUSTRIES LTD-2022RR-370806

PATIENT
  Age: 87 Year
  Sex: Female

DRUGS (8)
  1. FOSFOMYCIN [Suspect]
     Active Substance: FOSFOMYCIN
     Indication: Urinary tract infection
     Dosage: 3 GRAM, 1/WEEK
     Route: 065
     Dates: start: 20221019, end: 20221201
  2. PANTOPRAZOLE [Suspect]
     Active Substance: PANTOPRAZOLE
     Indication: Prophylaxis against gastrointestinal ulcer
     Dosage: 40 MILLIGRAM, DAILY
     Route: 065
     Dates: start: 20221026, end: 20221201
  3. PHLOROGLUCINOL [Suspect]
     Active Substance: PHLOROGLUCINOL
     Indication: Abdominal pain
     Dosage: 160 MILLIGRAM, Q4H
     Route: 065
     Dates: start: 20221026, end: 20221201
  4. VOGALENE [Suspect]
     Active Substance: METOPIMAZINE
     Indication: Nausea
     Dosage: 7.5 MILLIGRAM, DAILY
     Route: 065
     Dates: start: 20221026, end: 20221201
  5. CHOLECALCIFEROL [Suspect]
     Active Substance: CHOLECALCIFEROL
     Indication: Hypovitaminosis
     Dosage: UNK
     Route: 065
     Dates: start: 20221117
  6. RACECADOTRIL [Suspect]
     Active Substance: RACECADOTRIL
     Indication: Diarrhoea
     Dosage: 100 MILLIGRAM, Q4H
     Route: 065
     Dates: start: 20221026, end: 20221201
  7. DICLOFENAC SODIUM [Suspect]
     Active Substance: DICLOFENAC SODIUM
     Indication: Pain
     Dosage: UNK
     Route: 065
     Dates: start: 20221026
  8. ANETHOLTRITHION [Suspect]
     Active Substance: ANETHOLTRITHION
     Indication: Dyspepsia
     Dosage: 25 MILLIGRAM, Q4H
     Route: 065
     Dates: start: 20221026, end: 20221201

REACTIONS (1)
  - Drug reaction with eosinophilia and systemic symptoms [Not Recovered/Not Resolved]

NARRATIVE: CASE EVENT DATE: 20221122
